FAERS Safety Report 9677692 (Version 2)
Quarter: 2014Q1

REPORT INFORMATION
  Report Type: Report from Study
  Country: JP (occurrence: JP)
  Receive Date: 20131108
  Receipt Date: 20140130
  Transmission Date: 20141002
  Serious: Yes (Hospitalization)
  Sender: FDA-Public Use
  Company Number: JP-JNJFOC-20131018541

PATIENT
  Age: 58 Year
  Sex: Male

DRUGS (9)
  1. STELARA [Suspect]
     Indication: PSORIASIS
     Route: 058
     Dates: start: 20130201, end: 20130201
  2. STELARA [Suspect]
     Indication: PSORIASIS
     Route: 058
     Dates: start: 20130329, end: 20130329
  3. STELARA [Suspect]
     Indication: PSORIASIS
     Route: 058
     Dates: start: 20130621, end: 20130621
  4. STELARA [Suspect]
     Indication: PSORIASIS
     Route: 058
     Dates: start: 20130920
  5. OXAROL [Concomitant]
     Indication: PSORIASIS
     Route: 061
  6. MYSER [Concomitant]
     Indication: PSORIASIS
     Route: 061
  7. ALMETA [Concomitant]
     Indication: PSORIASIS
     Route: 061
  8. ADALAT [Concomitant]
     Indication: HYPERTENSION
     Route: 048
  9. MIRCERA [Concomitant]
     Route: 065
     Dates: start: 20130225, end: 20130524

REACTIONS (1)
  - Cardiac failure [Recovered/Resolved]
